FAERS Safety Report 7081104-4 (Version None)
Quarter: 2010Q4

REPORT INFORMATION
  Report Type: 
  Country: None (occurrence: None)
  Receive Date: 20101103
  Receipt Date: 20101028
  Transmission Date: 20110411
  Serious: Yes (Life-Threatening, Hospitalization)
  Sender: FDA-Public Use
  Company Number: A0888721A

PATIENT
  Sex: Female

DRUGS (13)
  1. TYKERB [Suspect]
     Indication: BREAST CANCER
     Dosage: 1250MG PER DAY
     Route: 048
     Dates: start: 20101001, end: 20101021
  2. XELODA [Suspect]
     Dosage: 2000MG TWICE PER DAY
     Route: 048
     Dates: start: 20101001, end: 20101015
  3. VITAMIN A [Concomitant]
  4. VITAMIN D [Concomitant]
  5. COLACE [Concomitant]
  6. SENOKOT [Concomitant]
  7. MICARDIS [Concomitant]
  8. ACTONEL [Concomitant]
  9. HYDROMORPHONE HCL [Concomitant]
  10. VERAPAMIL [Concomitant]
  11. CELEBREX [Concomitant]
  12. PREVACID [Concomitant]
  13. BLOOD PRESSURE MEDICATION [Concomitant]
     Indication: HYPERTENSION

REACTIONS (5)
  - DEHYDRATION [None]
  - DIARRHOEA [None]
  - NAUSEA [None]
  - RENAL FAILURE ACUTE [None]
  - VOMITING [None]
